FAERS Safety Report 25425602 (Version 1)
Quarter: 2025Q2

REPORT INFORMATION
  Report Type: Spontaneous
  Country: AT (occurrence: AT)
  Receive Date: 20250611
  Receipt Date: 20250611
  Transmission Date: 20250717
  Serious: Yes (Other)
  Sender: BEIGENE
  Company Number: AT-BEIGENE-BGN-2025-009176

PATIENT
  Age: 36 Year

DRUGS (3)
  1. TEVIMBRA [Suspect]
     Active Substance: TISLELIZUMAB-JSGR
     Indication: Nasopharyngeal cancer
     Dosage: 200 MILLIGRAM, Q3WK, D2
  2. CAPECITABINE [Concomitant]
     Active Substance: CAPECITABINE
     Indication: Nasopharyngeal cancer
     Dosage: 650 MILLIGRAM/SQ. METER, BID
  3. GEMCITABINE [Concomitant]
     Active Substance: GEMCITABINE
     Indication: Nasopharyngeal cancer

REACTIONS (1)
  - Disease progression [Unknown]
